FAERS Safety Report 20515015 (Version 1)
Quarter: 2022Q1

REPORT INFORMATION
  Report Type: Spontaneous
  Country: US (occurrence: US)
  Receive Date: 20220224
  Receipt Date: 20220224
  Transmission Date: 20220423
  Serious: Yes (Death, Hospitalization)
  Sender: FDA-Public Use
  Company Number: US-TEVA-2022-US-2009362

PATIENT
  Age: 67 Year
  Sex: Female

DRUGS (4)
  1. VORICONAZOLE [Suspect]
     Active Substance: VORICONAZOLE
     Indication: Antifungal prophylaxis
     Route: 048
  2. NYSTATIN [Suspect]
     Active Substance: NYSTATIN
     Indication: Mucormycosis
     Route: 061
  3. AMPHOTERICIN B [Suspect]
     Active Substance: AMPHOTERICIN B
     Indication: Mucormycosis
     Dosage: 5 MG/KG DAILY; TOTAL OF 5.2 G OVER 13 DAYS
     Route: 042
  4. POSACONAZOLE [Suspect]
     Active Substance: POSACONAZOLE
     Indication: Mucormycosis
     Route: 065

REACTIONS (2)
  - Mucormycosis [Fatal]
  - Drug ineffective [Fatal]
